FAERS Safety Report 22530915 (Version 1)
Quarter: 2023Q2

REPORT INFORMATION
  Report Type: Spontaneous
  Country: US (occurrence: US)
  Receive Date: 20230607
  Receipt Date: 20230607
  Transmission Date: 20230722
  Serious: Yes (Death)
  Sender: FDA-Public Use
  Company Number: US-KOREA IPSEN Pharma-2023-12108

PATIENT
  Age: 74 Year
  Sex: Male

DRUGS (1)
  1. BOTULINUM TOXIN TYPE A [Suspect]
     Active Substance: BOTULINUM TOXIN TYPE A
     Indication: Immune-mediated myositis
     Route: 065

REACTIONS (5)
  - COVID-19 [Fatal]
  - Myopathy [Unknown]
  - Blood creatine phosphokinase increased [Unknown]
  - Drug ineffective for unapproved indication [Unknown]
  - Off label use [Unknown]
